FAERS Safety Report 4963596-7 (Version None)
Quarter: 2006Q1

REPORT INFORMATION
  Report Type: 
  Country: None (occurrence: None)
  Receive Date: 20060201
  Receipt Date: 20051114
  Transmission Date: 20060701
  Serious: No
  Sender: FDA-Public Use
  Company Number: 2005PV004726

PATIENT
  Age: 67 Year
  Sex: Female
  Weight: 82.7815 kg

DRUGS (10)
  1. BYETTA [Suspect]
     Indication: DIABETES MELLITUS NON-INSULIN-DEPENDENT
     Dosage: 5 MCG, BID, SC
     Route: 058
     Dates: start: 20051113
  2. ACTOS [Concomitant]
  3. LOTREL [Concomitant]
  4. BENICAR [Concomitant]
  5. CELEBREX [Concomitant]
  6. XANAX [Concomitant]
  7. VICODIN [Concomitant]
  8. MUCOMYST [Concomitant]
  9. TOBRAMYCIN [Concomitant]
  10. ALBUTEROL [Concomitant]

REACTIONS (2)
  - FEELING JITTERY [None]
  - PARAESTHESIA ORAL [None]
